FAERS Safety Report 20617664 (Version 1)
Quarter: 2022Q1

REPORT INFORMATION
  Report Type: Spontaneous
  Country: US (occurrence: US)
  Receive Date: 20220321
  Receipt Date: 20220321
  Transmission Date: 20220423
  Serious: No
  Sender: FDA-Public Use
  Company Number: US-TEVA-2021-US-1995738

PATIENT
  Age: 35 Year
  Sex: Male

DRUGS (1)
  1. DEXTROAMPHET SACCHARAT, AMPHET ASPARTATE, DEXTROAMPHET SULFATE AND AMP [Suspect]
     Active Substance: AMPHETAMINE ASPARTATE\AMPHETAMINE SULFATE\DEXTROAMPHETAMINE SACCHARATE\DEXTROAMPHETAMINE SULFATE
     Indication: Obsessive-compulsive disorder
     Dosage: TWO OF THE 5 MG TABLETS AND 2 OF THE 20 MG TABLETS FOR A DOSE OF 50 MG OF INSTANT RELEASE PER DAY
     Route: 065
     Dates: start: 2011, end: 20220114

REACTIONS (2)
  - Adverse drug reaction [Unknown]
  - Psychotic disorder [Recovered/Resolved]
